FAERS Safety Report 6509310-5 (Version None)
Quarter: 2009Q4

REPORT INFORMATION
  Report Type: 
  Country: None (occurrence: None)
  Receive Date: 20091222
  Receipt Date: 20091215
  Transmission Date: 20100525
  Serious: Yes (Other)
  Sender: FDA-Public Use
  Company Number: US-BIOGENIDEC-2009BI041292

PATIENT
  Sex: Female

DRUGS (1)
  1. AVONEX [Suspect]
     Indication: MULTIPLE SCLEROSIS
     Route: 030
     Dates: start: 20060811, end: 20071001

REACTIONS (3)
  - CAROTID ARTERY OCCLUSION [None]
  - INTERVERTEBRAL DISC DEGENERATION [None]
  - THYROID CANCER [None]
